FAERS Safety Report 5295015-8 (Version None)
Quarter: 2007Q2

REPORT INFORMATION
  Report Type: 
  Country: None (occurrence: None)
  Receive Date: 20070412
  Receipt Date: 20070403
  Transmission Date: 20071010
  Serious: Yes (Hospitalization)
  Sender: FDA-Public Use
  Company Number: JP-ABBOTT-07P-087-0363803-00

PATIENT
  Age: 68 Year
  Sex: Male

DRUGS (7)
  1. SEVOFLURANE [Suspect]
     Indication: GENERAL ANAESTHESIA
     Route: 055
  2. THIAMYLAL SODIUM [Suspect]
     Indication: DRUG USE FOR UNKNOWN INDICATION
  3. NITROUS OXIDE W/ OXYGEN [Suspect]
     Indication: DRUG USE FOR UNKNOWN INDICATION
  4. LIDOCAINE [Suspect]
     Indication: DRUG USE FOR UNKNOWN INDICATION
  5. ETILEFRINE HYDROCHLORIDE [Suspect]
     Indication: DRUG USE FOR UNKNOWN INDICATION
  6. PETHIDINE HYDROCHLORIDE [Suspect]
     Indication: DRUG USE FOR UNKNOWN INDICATION
  7. CEFTAZIDIME [Suspect]
     Indication: DRUG USE FOR UNKNOWN INDICATION

REACTIONS (1)
  - HAEMOLYTIC URAEMIC SYNDROME [None]
